FAERS Safety Report 21358350 (Version 1)
Quarter: 2022Q3

REPORT INFORMATION
  Report Type: Spontaneous
  Country: US (occurrence: US)
  Receive Date: 20220921
  Receipt Date: 20220921
  Transmission Date: 20221027
  Serious: Yes (Other)
  Sender: FDA-Public Use
  Company Number: US-NOVARTISPH-NVSC2022US208873

PATIENT
  Sex: Female

DRUGS (2)
  1. FEMARA [Suspect]
     Active Substance: LETROZOLE
     Indication: Breast cancer stage IV
     Dosage: UNK
     Route: 065
  2. TAMOXIFEN [Concomitant]
     Active Substance: TAMOXIFEN
     Indication: Breast cancer stage IV
     Dosage: UNK
     Route: 048

REACTIONS (8)
  - Metastases to stomach [Unknown]
  - Haemorrhage [Unknown]
  - Ocular hyperaemia [Unknown]
  - Contusion [Unknown]
  - Hypotension [Unknown]
  - Vomiting [Unknown]
  - Blood pressure increased [Unknown]
  - Injection site haemorrhage [Unknown]
